FAERS Safety Report 18530502 (Version 1)
Quarter: 2020Q4

REPORT INFORMATION
  Report Type: Spontaneous
  Country: RO (occurrence: RO)
  Receive Date: 20201121
  Receipt Date: 20201121
  Transmission Date: 20210114
  Serious: Yes (Hospitalization, Other)
  Sender: FDA-Public Use
  Company Number: RO-MICRO LABS LIMITED-ML2020-03405

PATIENT
  Age: 61 Year
  Sex: Female

DRUGS (5)
  1. LEVOFLOXACIN. [Suspect]
     Active Substance: LEVOFLOXACIN
     Indication: PROPHYLAXIS
  2. CYTARABINE. [Suspect]
     Active Substance: CYTARABINE
     Dosage: 500 MG/M2  BID AT DAY 2 AND DAY 3),
  3. UNSPECIFIED CORTICOSTEROIDS [Suspect]
     Active Substance: CORTICOSTEROID NOS
  4. METHOTREXATE. [Suspect]
     Active Substance: METHOTREXATE
     Dosage: 1 G/M2 AT DAY 1
  5. IMATINIB. [Suspect]
     Active Substance: IMATINIB MESYLATE

REACTIONS (3)
  - Acute respiratory distress syndrome [Recovered/Resolved]
  - Stenotrophomonas infection [Recovered/Resolved]
  - Pneumonia bacterial [Recovered/Resolved]
